FAERS Safety Report 23906555 (Version 2)
Quarter: 2024Q3

REPORT INFORMATION
  Report Type: Spontaneous
  Country: FR (occurrence: FR)
  Receive Date: 20240528
  Receipt Date: 20240731
  Transmission Date: 20241016
  Serious: Yes (Other)
  Sender: ROCHE
  Company Number: FR-ROCHE-3566293

PATIENT
  Age: 73 Year
  Sex: Female
  Weight: 59 kg

DRUGS (1)
  1. OCREVUS [Suspect]
     Active Substance: OCRELIZUMAB
     Indication: Product used for unknown indication
     Route: 042

REACTIONS (1)
  - Acute leukaemia [Unknown]
